FAERS Safety Report 22215289 (Version 1)
Quarter: 2023Q2

REPORT INFORMATION
  Report Type: Spontaneous
  Country: US (occurrence: US)
  Receive Date: 20230415
  Receipt Date: 20230415
  Transmission Date: 20230722
  Serious: No
  Sender: FDA-Public Use
  Company Number: US-JNJFOC-20191046963

PATIENT
  Age: 92 Year
  Sex: Male
  Weight: 81.720 kg

DRUGS (1)
  1. IMODIUM MULTI-SYMPTOM RELIEF [Suspect]
     Active Substance: DIMETHICONE\LOPERAMIDE HYDROCHLORIDE
     Indication: Functional gastrointestinal disorder
     Route: 048
     Dates: end: 20191031

REACTIONS (3)
  - Dysphagia [Recovered/Resolved]
  - Product physical issue [Unknown]
  - Expired product administered [Unknown]

NARRATIVE: CASE EVENT DATE: 20190601
